FAERS Safety Report 14116138 (Version 1)
Quarter: 2020Q3

REPORT INFORMATION
  Report Type: Report from Study
  Country: PL (occurrence: PL)
  Receive Date: 20171023
  Receipt Date: 20171023
  Transmission Date: 20201104
  Serious: Yes (Hospitalization)
  Sender: FDA-Public Use
  Company Number: PL-PFIZER INC-2017440467

PATIENT
  Age: 64 Year
  Sex: Male

DRUGS (12)
  1. CARBOPLATIN. [Suspect]
     Active Substance: CARBOPLATIN
     Indication: SMALL CELL LUNG CANCER
     Dosage: 418 AUC
     Route: 065
     Dates: start: 20170614, end: 20170614
  2. TREMELIMUMAB. [Suspect]
     Active Substance: TREMELIMUMAB
     Dosage: 75 MG, UNK
     Route: 042
     Dates: start: 20170712, end: 20170712
  3. ETOPOSIDE. [Suspect]
     Active Substance: ETOPOSIDE
     Indication: SMALL CELL LUNG CANCER
     Dosage: 135 MG/M2, UNK
     Route: 065
     Dates: start: 20170614, end: 20170614
  4. TREMELIMUMAB. [Suspect]
     Active Substance: TREMELIMUMAB
     Indication: SMALL CELL LUNG CANCER
     Dosage: 75 MG, UNK
     Route: 042
     Dates: start: 20170614, end: 20170614
  5. MEDI4736 [Suspect]
     Active Substance: DURVALUMAB
     Dosage: 1500 MG, UNK
     Route: 042
     Dates: start: 20170712, end: 20170712
  6. ETOPOSIDE. [Suspect]
     Active Substance: ETOPOSIDE
     Dosage: 120 MG/M2, UNK
     Route: 065
     Dates: start: 20170714, end: 20170714
  7. CARBOPLATIN. [Suspect]
     Active Substance: CARBOPLATIN
     Dosage: 418 AUC
     Route: 065
     Dates: start: 20170712, end: 20170712
  8. ETOPOSIDE. [Suspect]
     Active Substance: ETOPOSIDE
     Dosage: 135 MG/M2, UNK
     Route: 065
     Dates: start: 20170616, end: 20170616
  9. ETOPOSIDE. [Suspect]
     Active Substance: ETOPOSIDE
     Dosage: 135 MG/M2, UNK
     Route: 065
     Dates: start: 20170615, end: 20170615
  10. MEDI4736 [Suspect]
     Active Substance: DURVALUMAB
     Indication: SMALL CELL LUNG CANCER
     Dosage: 1500 MG, UNK
     Route: 042
     Dates: start: 20170614, end: 20170614
  11. ETOPOSIDE. [Suspect]
     Active Substance: ETOPOSIDE
     Dosage: 120 MG/M2, UNK
     Route: 065
     Dates: start: 20170712, end: 20170712
  12. ETOPOSIDE. [Suspect]
     Active Substance: ETOPOSIDE
     Dosage: 120 MG/M2, UNK
     Route: 065
     Dates: start: 20170713, end: 20170713

REACTIONS (1)
  - Dizziness [Not Recovered/Not Resolved]

NARRATIVE: CASE EVENT DATE: 20170802
